FAERS Safety Report 13296252 (Version 1)
Quarter: 2017Q1

REPORT INFORMATION
  Report Type: Spontaneous
  Country: DE (occurrence: DE)
  Receive Date: 20170304
  Receipt Date: 20170304
  Transmission Date: 20170428
  Serious: Yes (Other)
  Sender: FDA-Public Use
  Company Number: DE-JNJFOC-20170220321

PATIENT
  Sex: Female

DRUGS (2)
  1. DOLORMIN [Suspect]
     Active Substance: IBUPROFEN
     Indication: PRODUCT USED FOR UNKNOWN INDICATION
     Route: 048
  2. DOLORMIN [Suspect]
     Active Substance: IBUPROFEN
     Indication: PRODUCT USED FOR UNKNOWN INDICATION
     Dosage: 5-6 TABLETS AT ONCE AND ABOUT 1 HOUR LATER ANOTHER 4-5 TABLETS AT ONCE
     Route: 048
     Dates: start: 200303, end: 200303

REACTIONS (7)
  - Skin disorder [Not Recovered/Not Resolved]
  - Suicidal ideation [Not Recovered/Not Resolved]
  - Overdose [Not Recovered/Not Resolved]
  - Swelling face [Not Recovered/Not Resolved]
  - Eye disorder [Not Recovered/Not Resolved]
  - Miosis [Not Recovered/Not Resolved]
  - Pupillary reflex impaired [Not Recovered/Not Resolved]

NARRATIVE: CASE EVENT DATE: 200303
